FAERS Safety Report 4872911-4 (Version None)
Quarter: 2006Q1

REPORT INFORMATION
  Report Type: 
  Country: None (occurrence: None)
  Receive Date: 20060105
  Receipt Date: 20050118
  Transmission Date: 20060701
  Serious: Yes (Other)
  Sender: FDA-Public Use
  Company Number: US-BRISTOL-MYERS SQUIBB COMPANY-12828760

PATIENT
  Age: 40 Year
  Sex: Female

DRUGS (3)
  1. SERZONE [Suspect]
     Indication: DEPRESSION
     Route: 048
     Dates: start: 19990330, end: 20010401
  2. ORTHO TRI-CYCLEN [Concomitant]
  3. LORAZEPAM [Concomitant]

REACTIONS (3)
  - HEPATIC STEATOSIS [None]
  - HEPATITIS ACUTE [None]
  - NIGHTMARE [None]
